FAERS Safety Report 8922689 (Version 2)
Quarter: 2013Q2

REPORT INFORMATION
  Report Type: Spontaneous
  Country: FR (occurrence: FR)
  Receive Date: 20121123
  Receipt Date: 20130531
  Transmission Date: 20140414
  Serious: Yes (Congenital Anomaly)
  Sender: FDA-Public Use
  Company Number: PHHY2012FR105346

PATIENT
  Sex: Female

DRUGS (4)
  1. TRILEPTAL [Suspect]
     Route: 064
  2. URBANYL [Suspect]
     Route: 064
  3. LEVOTHYROX [Suspect]
     Route: 064
  4. SPECIAFOLDINE [Suspect]
     Route: 064

REACTIONS (1)
  - Iris coloboma [Not Recovered/Not Resolved]
